FAERS Safety Report 18172288 (Version 2)
Quarter: 2020Q3

REPORT INFORMATION
  Report Type: Report from Study
  Country: None (occurrence: EE)
  Receive Date: 20200820
  Receipt Date: 20200823
  Transmission Date: 20201103
  Serious: Yes (Hospitalization, Other)
  Sender: FDA-Public Use
  Company Number: EE-ABBVIE-20K-221-3529863-00

PATIENT
  Age: 68 Year
  Sex: Male

DRUGS (4)
  1. DUODOPA [Suspect]
     Active Substance: CARBIDOPA\LEVODOPA
  2. DUODOPA [Suspect]
     Active Substance: CARBIDOPA\LEVODOPA
     Indication: PARKINSON^S DISEASE
     Dosage: MORNING DOSE : 6.0ML??CONTINUOUS DOSE: 3.0ML/H??EXTRA DOSE: 1.0 ML/H
     Route: 050
     Dates: start: 20200211
  3. SOLIFENACIN [Concomitant]
     Active Substance: SOLIFENACIN
     Indication: HYPERTONIC BLADDER
     Route: 048
     Dates: start: 20200522
  4. MIRTAZAPINE. [Concomitant]
     Active Substance: MIRTAZAPINE
     Indication: INSOMNIA
     Route: 048
     Dates: start: 20190919

REACTIONS (4)
  - Haemothorax [Recovered/Resolved]
  - Rib fracture [Recovered/Resolved]
  - Fall [Unknown]
  - Pneumothorax traumatic [Recovered/Resolved]

NARRATIVE: CASE EVENT DATE: 20200627
